FAERS Safety Report 25638331 (Version 1)
Quarter: 2025Q3

REPORT INFORMATION
  Report Type: Spontaneous
  Country: TR (occurrence: US)
  Receive Date: 20250804
  Receipt Date: 20250804
  Transmission Date: 20251020
  Serious: Yes (Other)
  Sender: ABBVIE
  Company Number: US-ABBVIE-6397501

PATIENT
  Age: 33 Year
  Sex: Female

DRUGS (1)
  1. BOTOX [Suspect]
     Active Substance: ONABOTULINUMTOXINA
     Indication: Product used for unknown indication
     Route: 065
     Dates: start: 2023, end: 2023

REACTIONS (4)
  - Transient ischaemic attack [Unknown]
  - Cerebrovascular accident [Unknown]
  - Migraine [Unknown]
  - Mental impairment [Unknown]

NARRATIVE: CASE EVENT DATE: 20250301
